FAERS Safety Report 9658098 (Version 2)
Quarter: 2013Q4

REPORT INFORMATION
  Report Type: Spontaneous
  Country: DE (occurrence: DE)
  Receive Date: 20131030
  Receipt Date: 20131107
  Transmission Date: 20140711
  Serious: Yes (Other)
  Sender: FDA-Public Use
  Company Number: PHHY2013DE119485

PATIENT
  Age: 43 Year
  Sex: Male

DRUGS (1)
  1. DIAZEPAM [Suspect]
     Dosage: 250 MG

REACTIONS (24)
  - Hypoxic-ischaemic encephalopathy [Unknown]
  - Suicide attempt [Unknown]
  - Parkinsonism [Recovering/Resolving]
  - Tremor [Recovering/Resolving]
  - Hypotonia [Recovering/Resolving]
  - Cyanosis [Recovering/Resolving]
  - Cognitive disorder [Recovering/Resolving]
  - Disturbance in attention [Recovering/Resolving]
  - Decreased interest [Recovering/Resolving]
  - Bradyphrenia [Recovering/Resolving]
  - Sopor [Recovering/Resolving]
  - Somnolence [Recovering/Resolving]
  - Depression [Recovering/Resolving]
  - Respiratory depression [Recovering/Resolving]
  - Oxygen saturation decreased [Recovering/Resolving]
  - Hypotension [Recovering/Resolving]
  - Overdose [Unknown]
  - Saccadic eye movement [Recovering/Resolving]
  - Cogwheel rigidity [Recovering/Resolving]
  - Hypokinesia [Recovering/Resolving]
  - Palmomental reflex [Unknown]
  - IIIrd nerve paresis [Recovering/Resolving]
  - Tongue movement disturbance [Recovering/Resolving]
  - Glabellar reflex abnormal [Recovering/Resolving]
